FAERS Safety Report 6581017-8 (Version None)
Quarter: 2010Q1

REPORT INFORMATION
  Report Type: 
  Country: None (occurrence: None)
  Receive Date: 20100215
  Receipt Date: 20100201
  Transmission Date: 20100710
  Serious: Yes (Hospitalization, Other)
  Sender: FDA-Public Use
  Company Number: US-ELI_LILLY_AND_COMPANY-US200911005469

PATIENT
  Sex: Female

DRUGS (17)
  1. FORTEO [Suspect]
     Dosage: UNK, UNK
     Dates: start: 20080101, end: 20090301
  2. FORTEO [Suspect]
     Dosage: UNK, UNK
     Dates: start: 20090101
  3. PREDNISONE [Concomitant]
     Dosage: 7.5 MG, DAILY (1/D)
  4. METOPROLOL TARTRATE [Concomitant]
     Dosage: 25 MG, 2/D
  5. PROTONIX [Concomitant]
     Dosage: 40 MG, DAILY (1/D)
  6. LORAZEPAM [Concomitant]
     Dosage: 2.5 MG, 2/D
  7. VESICARE [Concomitant]
     Dosage: 5 MG, DAILY (1/D)
  8. AMLODIPINE [Concomitant]
     Dosage: 5 MG, DAILY (1/D)
  9. ULTRAM [Concomitant]
     Dosage: 50 MG, UNK
  10. TYLENOL (CAPLET) [Concomitant]
     Dosage: 500 MG, 3/D
  11. OXYGEN [Concomitant]
     Dosage: 3 LITER, EACH EVENING
  12. BENADRYL [Concomitant]
     Indication: INSOMNIA
     Dosage: 25 MG, AS NEEDED
  13. LYRICA [Concomitant]
     Dosage: 100 MG, 2/D
  14. COLACE [Concomitant]
     Dosage: 100 MG, 2/D
  15. MAGNESIUM OXIDE [Concomitant]
     Dosage: 400 MG, 3/D
  16. SPIRONOLACTONE [Concomitant]
     Dosage: 25 MG, DAILY (1/D)
  17. LASIX [Concomitant]
     Dosage: 40 MG, DAILY (1/D)

REACTIONS (3)
  - ABDOMINAL HERNIA [None]
  - COLITIS ISCHAEMIC [None]
  - MESENTERIC ARTERIOSCLEROSIS [None]
